FAERS Safety Report 10683782 (Version 9)
Quarter: 2021Q4

REPORT INFORMATION
  Report Type: Spontaneous
  Country: US (occurrence: US)
  Receive Date: 20141230
  Receipt Date: 20211130
  Transmission Date: 20220303
  Serious: Yes (Other)
  Sender: FDA-Public Use
  Company Number: US-PFIZER INC-2014360392

PATIENT
  Age: 66 Year
  Sex: Female

DRUGS (2)
  1. DILANTIN [Suspect]
     Active Substance: PHENYTOIN
     Indication: Seizure
     Dosage: 100 MG
  2. DILANTIN [Suspect]
     Active Substance: PHENYTOIN
     Dosage: 30 MG

REACTIONS (3)
  - Seizure [Unknown]
  - Dizziness [Unknown]
  - Memory impairment [Unknown]
